FAERS Safety Report 4925829-2 (Version None)
Quarter: 2006Q1

REPORT INFORMATION
  Report Type: 
  Country: None (occurrence: None)
  Receive Date: 20060228
  Receipt Date: 20050328
  Transmission Date: 20060701
  Serious: No
  Sender: FDA-Public Use
  Company Number: US-GLAXOSMITHKLINE-A0551534A

PATIENT
  Sex: Female

DRUGS (2)
  1. LAMICTAL [Suspect]
     Indication: BIPOLAR DISORDER
     Dosage: 25MG PER DAY
     Dates: start: 20050324, end: 20050328
  2. EFFEXOR XR [Concomitant]
     Dosage: 225MG IN THE MORNING
     Dates: start: 20041101, end: 20050404

REACTIONS (5)
  - DRUG EXPOSURE VIA BREAST MILK [None]
  - GASTROINTESTINAL DISORDER [None]
  - INFLUENZA [None]
  - PYREXIA [None]
  - RASH [None]
